FAERS Safety Report 16958448 (Version 1)
Quarter: 2019Q4

REPORT INFORMATION
  Report Type: Spontaneous
  Country: GB (occurrence: GB)
  Receive Date: 20191024
  Receipt Date: 20191024
  Transmission Date: 20200122
  Serious: Yes (Other)
  Sender: FDA-Public Use
  Company Number: GB-SEPTODONT-201905540

PATIENT
  Age: 22 Year
  Sex: Male

DRUGS (2)
  1. 4% ARTICAINE WITH 1:100,000 ADRENALINE [Suspect]
     Active Substance: ARTICAINE\EPINEPHRINE
     Indication: DENTAL LOCAL ANAESTHESIA
     Dosage: 2.2 MLS OF 4% ARTICAINE WITH 1:100,000 ADRENALINE AS VASOCONSTRICTOR
     Route: 004
  2. XYLOCAINE [Concomitant]
     Active Substance: LIDOCAINE HYDROCHLORIDE
     Indication: PRODUCT USED FOR UNKNOWN INDICATION

REACTIONS (6)
  - Feeling hot [Recovered/Resolved]
  - Pallor [Recovered/Resolved]
  - Drug hypersensitivity [Recovered/Resolved]
  - Incorrect route of product administration [Unknown]
  - Flushing [Recovered/Resolved]
  - Palpitations [Recovered/Resolved]

NARRATIVE: CASE EVENT DATE: 20190924
